FAERS Safety Report 19184049 (Version 2)
Quarter: 2021Q2

REPORT INFORMATION
  Report Type: Report from Study
  Country: DE (occurrence: DE)
  Receive Date: 20210427
  Receipt Date: 20210504
  Transmission Date: 20210717
  Serious: Yes (Other)
  Sender: FDA-Public Use
  Company Number: DE-AUROBINDO-AUR-APL-2020-025233

PATIENT
  Age: 11 Year
  Sex: Female

DRUGS (5)
  1. VARILRIX [Concomitant]
     Active Substance: VARICELLA-ZOSTER VIRUS STRAIN OKA/MERCK LIVE ANTIGEN
     Indication: VARICELLA ZOSTER PNEUMONIA
  2. VARILRIX [Concomitant]
     Active Substance: VARICELLA-ZOSTER VIRUS STRAIN OKA/MERCK LIVE ANTIGEN
     Indication: VARICELLA IMMUNISATION
     Dosage: UNK
     Route: 030
     Dates: start: 201602, end: 201602
  3. PRIORIX [Concomitant]
     Active Substance: MEASLES-MUMPS-RUBELLA VIRUS VACCINE
     Indication: ANTIVIRAL PROPHYLAXIS
     Dosage: UNK
     Route: 030
     Dates: start: 201207, end: 201207
  4. IMATINIB FILM?COATED TABLET [Suspect]
     Active Substance: IMATINIB MESYLATE
     Indication: CHRONIC MYELOID LEUKAEMIA
     Dosage: UNK
     Route: 065
     Dates: start: 2017
  5. PRIORIX [Concomitant]
     Active Substance: MEASLES-MUMPS-RUBELLA VIRUS VACCINE
     Indication: MEASLES IMMUNISATION

REACTIONS (7)
  - Drug ineffective [Unknown]
  - Cytogenetic abnormality [Recovered/Resolved]
  - Vaccination failure [Recovered/Resolved]
  - Immunosuppression [Not Recovered/Not Resolved]
  - Treatment failure [Recovered/Resolved]
  - Chronic myeloid leukaemia recurrent [Unknown]
  - B-lymphocyte count decreased [Unknown]

NARRATIVE: CASE EVENT DATE: 201708
